FAERS Safety Report 14190731 (Version 2)
Quarter: 2018Q2

REPORT INFORMATION
  Report Type: Report from Study
  Country: US (occurrence: US)
  Receive Date: 20171115
  Receipt Date: 20180601
  Transmission Date: 20180711
  Serious: Yes (Other)
  Sender: FDA-Public Use
  Company Number: US-SA-2017SA004346

PATIENT
  Age: 51 Year
  Sex: Female

DRUGS (1)
  1. LUMIZYME [Suspect]
     Active Substance: ALGLUCOSIDASE ALFA
     Indication: GLYCOGEN STORAGE DISEASE TYPE II
     Dosage: DOSE: 1600.00 (UNITS NOT PROVIDED) FREQUENCY: Q2
     Route: 041
     Dates: start: 20170105

REACTIONS (25)
  - Blood pressure increased [Recovered/Resolved]
  - Mobility decreased [Not Recovered/Not Resolved]
  - Fall [Unknown]
  - Gait disturbance [Not Recovered/Not Resolved]
  - Fatigue [Not Recovered/Not Resolved]
  - Limb discomfort [Not Recovered/Not Resolved]
  - Poor venous access [Not Recovered/Not Resolved]
  - Ill-defined disorder [Not Recovered/Not Resolved]
  - Areflexia [Unknown]
  - Sleep disorder [Unknown]
  - Loss of consciousness [Recovering/Resolving]
  - Joint swelling [Not Recovered/Not Resolved]
  - Neuralgia [Not Recovered/Not Resolved]
  - Burning sensation [Unknown]
  - Rotator cuff syndrome [Unknown]
  - Mobility decreased [Unknown]
  - Oxygen saturation decreased [Not Recovered/Not Resolved]
  - Tremor [Recovering/Resolving]
  - Vein disorder [Not Recovered/Not Resolved]
  - Joint injury [Unknown]
  - Cellulitis [Unknown]
  - Rash [Not Recovered/Not Resolved]
  - Decreased appetite [Not Recovered/Not Resolved]
  - Peripheral swelling [Unknown]
  - Limb injury [Unknown]

NARRATIVE: CASE EVENT DATE: 2017
